FAERS Safety Report 18261180 (Version 2)
Quarter: 2020Q4

REPORT INFORMATION
  Report Type: Other
  Country: US (occurrence: US)
  Receive Date: 20200914
  Receipt Date: 20201015
  Transmission Date: 20210113
  Serious: Yes (Other)
  Sender: FDA-Public Use
  Company Number: US-ROCHE-2676188

PATIENT
  Sex: Male

DRUGS (1)
  1. ALECENSA [Suspect]
     Active Substance: ALECTINIB HYDROCHLORIDE
     Indication: BRONCHIAL CARCINOMA
     Dosage: TAKE 4 CAPSULES BY MOUTH TWICE A DAY
     Route: 048
     Dates: start: 20200903

REACTIONS (1)
  - Neoplasm progression [Unknown]
